FAERS Safety Report 5229809-1 (Version None)
Quarter: 2007Q1

REPORT INFORMATION
  Report Type: 
  Country: None (occurrence: None)
  Receive Date: 20070206
  Receipt Date: 20060629
  Transmission Date: 20070707
  Serious: No
  Sender: FDA-Public Use
  Company Number: US-GLAXOSMITHKLINE-A0508679A

PATIENT
  Sex: Female

DRUGS (7)
  1. PAXIL [Suspect]
     Indication: PANIC DISORDER
     Dosage: 20MG PER DAY
     Route: 048
  2. DIOVAN [Concomitant]
  3. HYDROCHLOROTHIAZIDE [Concomitant]
  4. ZETIA [Concomitant]
  5. ZOCOR [Concomitant]
  6. NIASPAN [Concomitant]
  7. ASPIRIN [Concomitant]

REACTIONS (2)
  - FEELING ABNORMAL [None]
  - WEIGHT INCREASED [None]
